FAERS Safety Report 7688173-9 (Version None)
Quarter: 2011Q3

REPORT INFORMATION
  Report Type: 
  Country: None (occurrence: None)
  Receive Date: 20110817
  Receipt Date: 20110606
  Transmission Date: 20111222
  Serious: Yes (Life-Threatening, Hospitalization, Other)
  Sender: FDA-Public Use
  Company Number: US-GLAXOSMITHKLINE-A0921824A

PATIENT
  Age: 63 Year
  Sex: Male
  Weight: 84.1 kg

DRUGS (1)
  1. VOTRIENT [Suspect]
     Indication: RENAL CELL CARCINOMA
     Dosage: 800MG PER DAY
     Route: 048
     Dates: start: 20101101, end: 20110328

REACTIONS (2)
  - INTESTINAL PERFORATION [None]
  - WEIGHT DECREASED [None]
